FAERS Safety Report 21890197 (Version 1)
Quarter: 2023Q1

REPORT INFORMATION
  Report Type: Report from Study
  Country: BE (occurrence: BE)
  Receive Date: 20230120
  Receipt Date: 20230120
  Transmission Date: 20230417
  Serious: Yes (Death)
  Sender: FDA-Public Use
  Company Number: BE-ABBVIE-4276443

PATIENT
  Age: 87 Year
  Sex: Female

DRUGS (9)
  1. CARBIDOPA\LEVODOPA [Suspect]
     Active Substance: CARBIDOPA\LEVODOPA
     Indication: Parkinson^s disease
     Dosage: MD: 6.0 ML, CD: 2.5 ML/H, ED: 1.3 ML DURING 16 HOURS
     Route: 050
     Dates: start: 20220914, end: 20220919
  2. CARBIDOPA\LEVODOPA [Suspect]
     Active Substance: CARBIDOPA\LEVODOPA
     Dosage: MD: 6.0 ML, CD: 2.7 ML/H, ED: 1.3 ML DURING 16 HOURS
     Route: 050
     Dates: start: 20230111, end: 20230116
  3. CARBIDOPA\LEVODOPA [Suspect]
     Active Substance: CARBIDOPA\LEVODOPA
     Dosage: MD: 6.0 ML, CD: 2.5 ML/H, ED: 1.0 ML DURING 16 HOURS
     Route: 050
     Dates: start: 20220919, end: 20221219
  4. CARBIDOPA\LEVODOPA [Suspect]
     Active Substance: CARBIDOPA\LEVODOPA
     Dosage: MD: 6.0 ML, CD: 2.7 ML/H, ED: 1.3 ML DURING 16 HOURS
     Route: 050
     Dates: start: 20221212, end: 20230111
  5. CARBIDOPA\LEVODOPA [Suspect]
     Active Substance: CARBIDOPA\LEVODOPA
     Route: 050
     Dates: start: 20160425
  6. Parlodel 10 mg [Concomitant]
     Indication: Product used for unknown indication
  7. AMANTADINE [Concomitant]
     Active Substance: AMANTADINE
     Indication: Parkinson^s disease
     Dosage: FREQUENCY: ONCE IN THE MORNING
  8. BENSERAZIDE\LEVODOPA [Concomitant]
     Active Substance: BENSERAZIDE\LEVODOPA
     Indication: Product used for unknown indication
     Dosage: DOSE: 0.5 UNKNOWN?FORM STRENGTH: 250?FORM STRENGTH UNITS: CAPSULE?FREQUENCY TEXT: 07.00 , 16.00
  9. BENSERAZIDE\LEVODOPA [Concomitant]
     Active Substance: BENSERAZIDE\LEVODOPA
     Indication: Product used for unknown indication
     Dosage: DOSE: 0.75 UNKNOWN?FORM STRENGTH: 250?FORM STRENGTH UNITS: CAPSULE?FREQUENCY TEXT: 10.00, 13.00, ...

REACTIONS (1)
  - Death [Fatal]

NARRATIVE: CASE EVENT DATE: 20230116
